FAERS Safety Report 22844903 (Version 2)
Quarter: 2023Q4

REPORT INFORMATION
  Report Type: Spontaneous
  Country: GB (occurrence: GB)
  Receive Date: 20230821
  Receipt Date: 20231004
  Transmission Date: 20240110
  Serious: Yes (Other)
  Sender: FDA-Public Use
  Company Number: GB-MHRA-EYC 00209092

PATIENT
  Age: 68 Year
  Sex: Male
  Weight: 84 kg

DRUGS (9)
  1. RAMIPRIL [Suspect]
     Active Substance: RAMIPRIL
     Indication: Hypertension
     Dosage: 2.5 MILLIGRAM
     Route: 065
  2. RAMIPRIL [Suspect]
     Active Substance: RAMIPRIL
     Indication: Microalbuminuria
     Dosage: 10 MILLIGRAM
     Route: 048
  3. RAMIPRIL [Suspect]
     Active Substance: RAMIPRIL
     Dosage: 10 MILLIGRAM, UNKNOWN FREQUENCY
     Route: 048
  4. RAMIPRIL [Suspect]
     Active Substance: RAMIPRIL
     Dosage: 10 MILLIGRAM, UNKNOWN FREQUENCY
     Route: 048
  5. RAMIPRIL [Suspect]
     Active Substance: RAMIPRIL
     Dosage: 2.5 MILLIGRAM
     Route: 065
  6. ASPIRIN [Concomitant]
     Active Substance: ASPIRIN
     Indication: Product used for unknown indication
     Dosage: LOW DOSE
     Route: 065
  7. NEBIVOLOL [Concomitant]
     Active Substance: NEBIVOLOL
     Indication: Product used for unknown indication
     Dosage: UNK
     Route: 065
  8. ROSUVASTATIN [Concomitant]
     Active Substance: ROSUVASTATIN
     Indication: Product used for unknown indication
     Dosage: UNK
     Route: 065
  9. TRANDOLAPRIL [Concomitant]
     Active Substance: TRANDOLAPRIL
     Indication: Product used for unknown indication
     Dosage: UNK
     Route: 065

REACTIONS (29)
  - Balance disorder [Unknown]
  - Gynaecomastia [Unknown]
  - Diarrhoea [Recovered/Resolved]
  - Hypoacusis [Unknown]
  - Anxiety [Unknown]
  - Depressed mood [Unknown]
  - Restlessness [Unknown]
  - Feeling hot [Unknown]
  - Flushing [Unknown]
  - Malaise [Unknown]
  - Dizziness [Unknown]
  - Fatigue [Unknown]
  - Asthenia [Unknown]
  - Headache [Unknown]
  - Seizure [Unknown]
  - Muscle spasms [Unknown]
  - Non-cardiac chest pain [Unknown]
  - Arthralgia [Unknown]
  - Dry eye [Unknown]
  - Eye pruritus [Unknown]
  - Ocular hyperaemia [Unknown]
  - Libido decreased [Unknown]
  - Erectile dysfunction [Unknown]
  - Cough [Unknown]
  - Dyspnoea [Unknown]
  - Sleep disorder [Unknown]
  - Hyperhidrosis [Unknown]
  - Paraesthesia [Unknown]
  - Sensory disturbance [Unknown]

NARRATIVE: CASE EVENT DATE: 20230719
